FAERS Safety Report 18289150 (Version 14)
Quarter: 2025Q1

REPORT INFORMATION
  Report Type: Spontaneous
  Country: US (occurrence: US)
  Receive Date: 20200921
  Receipt Date: 20250317
  Transmission Date: 20250408
  Serious: No
  Sender: PFIZER
  Company Number: US-PFIZER INC-2020361792

PATIENT
  Age: 81 Year
  Sex: Female
  Weight: 53.968 kg

DRUGS (32)
  1. IBRANCE [Suspect]
     Active Substance: PALBOCICLIB
     Indication: Breast cancer female
     Route: 048
     Dates: start: 20200925, end: 20201124
  2. IBRANCE [Suspect]
     Active Substance: PALBOCICLIB
     Indication: Breast cancer stage IV
     Route: 048
  3. IBRANCE [Suspect]
     Active Substance: PALBOCICLIB
  4. IBRANCE [Suspect]
     Active Substance: PALBOCICLIB
  5. IBRANCE [Suspect]
     Active Substance: PALBOCICLIB
     Dosage: 100 MG, DAILY
     Route: 048
  6. IBRANCE [Suspect]
     Active Substance: PALBOCICLIB
     Dosage: 100 MG, DAILY (TAKE 1 TAB BY MOUTH DAILY)
     Route: 048
  7. IBRANCE [Suspect]
     Active Substance: PALBOCICLIB
     Dates: start: 20220620, end: 2025
  8. AMLODIPINE [Concomitant]
     Active Substance: AMLODIPINE BESYLATE
  9. CALCIUM CARBONATE\CHOLECALCIFEROL [Concomitant]
     Active Substance: CALCIUM CARBONATE\CHOLECALCIFEROL
  10. CALTRATE WITH VITAMIN D [Concomitant]
     Active Substance: CALCIUM CARBONATE\CHOLECALCIFEROL
  11. CENTRUM SILVER [ASCORBIC ACID;BETACAROTENE;BIOTIN;CALCIUM;CHROMIUM;COL [Concomitant]
  12. CILOSTAZOL [Concomitant]
     Active Substance: CILOSTAZOL
  13. CLOPIDOGREL [Concomitant]
     Active Substance: CLOPIDOGREL BISULFATE
  14. DOXYCYCLINE [Concomitant]
     Active Substance: DOXYCYCLINE
  15. DOXYCYCLINE HYCLATE [Concomitant]
     Active Substance: DOXYCYCLINE HYCLATE
  16. ELIQUIS [Concomitant]
     Active Substance: APIXABAN
  17. FASLODEX [Concomitant]
     Active Substance: FULVESTRANT
  18. FASLODEX [Concomitant]
     Active Substance: FULVESTRANT
     Dates: start: 20220620
  19. GENTAMICIN [Concomitant]
     Active Substance: GENTAMICIN
  20. ACETAMINOPHEN\HYDROCODONE [Concomitant]
     Active Substance: ACETAMINOPHEN\HYDROCODONE
  21. IRON [Concomitant]
     Active Substance: IRON
  22. METOPROLOL TARTRATE [Concomitant]
     Active Substance: METOPROLOL TARTRATE
  23. VITAMINS NOS [Concomitant]
     Active Substance: VITAMINS
  24. OXYBUTYNIN [Concomitant]
     Active Substance: OXYBUTYNIN
  25. PRAVASTATIN SODIUM [Concomitant]
     Active Substance: PRAVASTATIN SODIUM
  26. PROCRIT [Concomitant]
     Active Substance: ERYTHROPOIETIN
     Indication: Chronic kidney disease
  27. PROCRIT [Concomitant]
     Active Substance: ERYTHROPOIETIN
     Indication: Anaemia
  28. TAMSULOSIN [Concomitant]
     Active Substance: TAMSULOSIN
  29. VITAMIN B12 [Concomitant]
     Active Substance: CYANOCOBALAMIN
  30. VITAMIN C [Concomitant]
     Active Substance: ASCORBIC ACID
  31. XGEVA [Concomitant]
     Active Substance: DENOSUMAB
  32. XGEVA [Concomitant]
     Active Substance: DENOSUMAB
     Dates: start: 20220620

REACTIONS (12)
  - Anxiety [Unknown]
  - Frustration tolerance decreased [Unknown]
  - Fatigue [Unknown]
  - Ovarian mass [Unknown]
  - Haemoglobin decreased [Unknown]
  - Full blood count decreased [Unknown]
  - Asthenia [Unknown]
  - Serum ferritin abnormal [Unknown]
  - Red blood cell sedimentation rate abnormal [Unknown]
  - Full blood count abnormal [Unknown]
  - Tumour marker abnormal [Unknown]
  - Off label use [Unknown]

NARRATIVE: CASE EVENT DATE: 20201124
